FAERS Safety Report 13844293 (Version 1)
Quarter: 2017Q3

REPORT INFORMATION
  Report Type: Report from Study
  Country: AU (occurrence: AU)
  Receive Date: 20170808
  Receipt Date: 20170808
  Transmission Date: 20171127
  Serious: Yes (Death)
  Sender: FDA-Public Use
  Company Number: AU-ROCHE-1975235

PATIENT
  Age: 60 Year
  Sex: Female

DRUGS (2)
  1. METHYLPREDNISOLONE. [Concomitant]
     Active Substance: METHYLPREDNISOLONE
  2. RITUXIMAB. [Suspect]
     Active Substance: RITUXIMAB
     Indication: MYOPATHY
     Dosage: 2 DOSES
     Route: 042

REACTIONS (3)
  - Obstructive pancreatitis [Fatal]
  - Off label use [Fatal]
  - Intentional product use issue [Unknown]
